FAERS Safety Report 17516444 (Version 6)
Quarter: 2021Q2

REPORT INFORMATION
  Report Type: Spontaneous
  Country: US (occurrence: US)
  Receive Date: 20200309
  Receipt Date: 20210401
  Transmission Date: 20210716
  Serious: No
  Sender: FDA-Public Use
  Company Number: US-PFIZER INC-2020052494

PATIENT
  Age: 30 Year
  Sex: Male

DRUGS (1)
  1. XELJANZ [Suspect]
     Active Substance: TOFACITINIB CITRATE
     Indication: COLITIS ULCERATIVE
     Dosage: 10 MG, 2X/DAY
     Route: 048
     Dates: start: 201912

REACTIONS (5)
  - Therapeutic product effect incomplete [Recovering/Resolving]
  - Condition aggravated [Recovering/Resolving]
  - Therapeutic product effect delayed [Unknown]
  - Product use issue [Unknown]
  - Cough [Recovered/Resolved]
